FAERS Safety Report 5455797-9 (Version None)
Quarter: 2007Q3

REPORT INFORMATION
  Report Type: 
  Country: None (occurrence: None)
  Receive Date: 20070918
  Receipt Date: 20070330
  Transmission Date: 20080115
  Serious: No
  Sender: FDA-Public Use
  Company Number: US-ASTRAZENECA-2006UW22405

PATIENT
  Age: 492 Month
  Sex: Male
  Weight: 152.3 kg

DRUGS (5)
  1. SEROQUEL [Suspect]
     Indication: SCHIZOPHRENIA
     Route: 048
     Dates: start: 20051001, end: 20060321
  2. SEROQUEL [Suspect]
     Indication: DEPRESSION
     Route: 048
     Dates: start: 20051001, end: 20060321
  3. ABILIFY [Concomitant]
  4. RISPERDAL [Concomitant]
  5. LEXAPRO [Concomitant]

REACTIONS (2)
  - DIABETES MELLITUS [None]
  - FUNGAL SKIN INFECTION [None]
